FAERS Safety Report 20543752 (Version 1)
Quarter: 2022Q1

REPORT INFORMATION
  Report Type: Spontaneous
  Country: ES (occurrence: ES)
  Receive Date: 20220303
  Receipt Date: 20220303
  Transmission Date: 20220423
  Serious: Yes (Other)
  Sender: FDA-Public Use
  Company Number: ES-SUN PHARMACEUTICAL INDUSTRIES LTD-2022RR-328455

PATIENT
  Age: 78 Year
  Sex: Female

DRUGS (4)
  1. IMATINIB [Suspect]
     Active Substance: IMATINIB
     Indication: Metastases to peritoneum
     Dosage: 400 MILLIGRAM, DAILY
     Route: 065
     Dates: start: 201007, end: 201201
  2. IMATINIB [Suspect]
     Active Substance: IMATINIB
     Dosage: 800 MILLIGRAM, DAILY
     Route: 065
     Dates: start: 201201, end: 201209
  3. SUNITINIB [Suspect]
     Active Substance: SUNITINIB
     Indication: Metastases to peritoneum
     Dosage: 37.5 MILLIGRAM, DAILY
     Route: 065
     Dates: start: 201210, end: 201307
  4. SUNITINIB [Suspect]
     Active Substance: SUNITINIB
     Dosage: 25 MILLIGRAM, DAILY
     Route: 065
     Dates: start: 201307, end: 201404

REACTIONS (5)
  - Therapeutic product effect incomplete [Unknown]
  - Disease progression [Unknown]
  - Sepsis [Unknown]
  - Oedema [Unknown]
  - Toxicity to various agents [Unknown]
